FAERS Safety Report 4455380-8 (Version None)
Quarter: 2004Q3

REPORT INFORMATION
  Report Type: 
  Country: None (occurrence: None)
  Receive Date: 20040825
  Receipt Date: 20040723
  Transmission Date: 20050211
  Serious: No
  Sender: FDA-Public Use
  Company Number: 208011

PATIENT
  Age: 48 Year
  Sex: Female

DRUGS (3)
  1. RAPTIVA [Suspect]
     Indication: PSORIASIS
     Dosage: 1 MG/KG,1/WEEK,SUBCUTANEOUS
     Route: 058
     Dates: start: 20031231, end: 20040501
  2. RAPTIVA [Suspect]
     Indication: PSORIASIS
     Dosage: 1 MG/KG,1/WEEK,SUBCUTANEOUS
     Route: 058
     Dates: start: 20040601
  3. LEXAPRO [Concomitant]

REACTIONS (2)
  - CHEILITIS [None]
  - STOMATITIS [None]
